FAERS Safety Report 12588108 (Version 2)
Quarter: 2016Q3

REPORT INFORMATION
  Report Type: Spontaneous
  Country: JP (occurrence: JP)
  Receive Date: 20160725
  Receipt Date: 20160822
  Transmission Date: 20161109
  Serious: Yes (Death)
  Sender: FDA-Public Use
  Company Number: JP-SA-2016SA133348

PATIENT
  Age: 72 Year
  Sex: Male
  Weight: 38.5 kg

DRUGS (2)
  1. TAXOTERE [Suspect]
     Active Substance: DOCETAXEL
     Indication: LUNG NEOPLASM MALIGNANT
     Dosage: 40 MG, ONCE EVERY 2 WEEKS
     Route: 042
     Dates: start: 20110118, end: 20110301
  2. DECADRON [Concomitant]
     Active Substance: DEXAMETHASONE
     Indication: PREMEDICATION
     Dosage: 6.6 MG, EVERY ADMINISTRATION OF DOCETAXEL
     Route: 065
     Dates: start: 20110118, end: 20110301

REACTIONS (6)
  - Pulmonary toxicity [Fatal]
  - Drug ineffective [Unknown]
  - Dyspnoea [Fatal]
  - Malaise [Fatal]
  - General physical health deterioration [Fatal]
  - Respiratory failure [Fatal]

NARRATIVE: CASE EVENT DATE: 20110308
